FAERS Safety Report 18050099 (Version 1)
Quarter: 2020Q3

REPORT INFORMATION
  Report Type: Report from Study
  Country: US (occurrence: US)
  Receive Date: 20200721
  Receipt Date: 20200721
  Transmission Date: 20201103
  Serious: No
  Sender: FDA-Public Use
  Company Number: NVSC2020US204750

PATIENT
  Age: 13 Year
  Sex: Female

DRUGS (1)
  1. ILARIS [Suspect]
     Active Substance: CANAKINUMAB
     Indication: PYREXIA
     Route: 058
     Dates: start: 20181201

REACTIONS (1)
  - Illness [Unknown]

NARRATIVE: CASE EVENT DATE: 20200701
